FAERS Safety Report 5134029-5 (Version None)
Quarter: 2006Q4

REPORT INFORMATION
  Report Type: 
  Country: None (occurrence: None)
  Receive Date: 20061018
  Receipt Date: 20061010
  Transmission Date: 20070319
  Serious: Yes (Hospitalization)
  Sender: FDA-Public Use
  Company Number: 2006US000647

PATIENT
  Age: 42 Year
  Sex: Male

DRUGS (20)
  1. PROGRAF [Suspect]
     Indication: PROPHYLAXIS AGAINST TRANSPLANT REJECTION
     Dosage: 3.5 MG, BID, ORAL
     Route: 048
  2. MYCOPHENOLATE MOFETIL [Suspect]
     Indication: PROPHYLAXIS AGAINST TRANSPLANT REJECTION
     Dosage: 1500 MG, BID, ORAL
     Route: 048
  3. PREDNISONE TAB [Suspect]
     Indication: PROPHYLAXIS AGAINST TRANSPLANT REJECTION
     Dosage: 60 MG, UID/QD, ORAL
     Route: 048
  4. THYMOGLOBULIN [Suspect]
     Indication: PROPHYLAXIS AGAINST TRANSPLANT REJECTION
     Dosage: 100 MG, UID/QD, IV NOS
     Route: 042
     Dates: start: 20050329, end: 20050405
  5. WELLBUTRIN [Suspect]
     Indication: DRUG USE FOR UNKNOWN INDICATION
     Dosage: 150 MG
     Dates: start: 20010615
  6. BUSPAR [Suspect]
     Indication: DRUG USE FOR UNKNOWN INDICATION
     Dosage: 30 MG
     Dates: start: 20030615
  7. BYETTA [Suspect]
     Indication: DRUG USE FOR UNKNOWN INDICATION
     Dates: start: 20060210, end: 20060226
  8. SEROQUEL [Concomitant]
  9. DEPAKOTE [Concomitant]
  10. PROTONIX [Concomitant]
  11. MAGNESIUM OXIDE [Concomitant]
  12. K-PHOS (POTASSIUM PHOSPHATE MONOBASIC) [Concomitant]
  13. LOPRESSOR [Concomitant]
  14. SEPTRA DS [Concomitant]
  15. METOPROLOL TARTRATE [Concomitant]
  16. LIPITOR [Concomitant]
  17. SENSIPAR (CINACALCET HYDROCHLORIDE) [Concomitant]
  18. NIFEDIPINE [Concomitant]
  19. REMERON [Concomitant]
  20. RISPERDAL [Concomitant]

REACTIONS (2)
  - CONVULSION [None]
  - MANIA [None]
